FAERS Safety Report 14045170 (Version 1)
Quarter: 2017Q4

REPORT INFORMATION
  Report Type: Spontaneous
  Country: US (occurrence: US)
  Receive Date: 20171005
  Receipt Date: 20171005
  Transmission Date: 20180321
  Serious: No
  Sender: FDA-Public Use
  Company Number: US-INDIVIOR LIMITED-INDV-102017-2017

PATIENT
  Sex: Female

DRUGS (2)
  1. SUBOXONE [Suspect]
     Active Substance: BUPRENORPHINE HYDROCHLORIDE\NALOXONE HYDROCHLORIDE
     Indication: DRUG USE DISORDER
     Dosage: 2 MG, EVERY 12 HOURS (TWICE DAILY)
     Route: 060
     Dates: start: 201705, end: 201705
  2. SUBOXONE [Suspect]
     Active Substance: BUPRENORPHINE HYDROCHLORIDE\NALOXONE HYDROCHLORIDE
     Dosage: CUTTING 2 MG FILM, TAKING 1/4 OF AFILM, TWICE DAILY
     Route: 060
     Dates: start: 201705, end: 201705

REACTIONS (5)
  - Dizziness [Unknown]
  - Product preparation error [Recovered/Resolved]
  - Product use issue [Recovered/Resolved]
  - Headache [Unknown]
  - Intentional underdose [Recovered/Resolved]

NARRATIVE: CASE EVENT DATE: 201705
